FAERS Safety Report 17629161 (Version 1)
Quarter: 2020Q1

REPORT INFORMATION
  Report Type: Spontaneous
  Country: US (occurrence: US)
  Receive Date: 20200330
  Receipt Date: 20200330
  Transmission Date: 20200409
  Serious: Yes (Other)
  Sender: FDA-Public Use
  Company Number: None

PATIENT
  Age: 44 Year
  Sex: Female
  Weight: 89.81 kg

DRUGS (2)
  1. CBD/CBD OIL VAPE [Suspect]
     Active Substance: CANNABIDIOL\DEVICE\HERBALS
     Indication: ANXIETY
     Route: 048
     Dates: start: 20200227, end: 20200227
  2. CBD/CBD OIL VAPE [Suspect]
     Active Substance: CANNABIDIOL\DEVICE\HERBALS
     Indication: PAIN
     Route: 048
     Dates: start: 20200227, end: 20200227

REACTIONS (2)
  - Dyspnoea [None]
  - Chest pain [None]

NARRATIVE: CASE EVENT DATE: 20200227
